FAERS Safety Report 4513307-4 (Version None)
Quarter: 2004Q4

REPORT INFORMATION
  Report Type: 
  Country: None (occurrence: None)
  Receive Date: 20041130
  Receipt Date: 20040623
  Transmission Date: 20050328
  Serious: No
  Sender: FDA-Public Use
  Company Number: US-BRISTOL-MYERS SQUIBB COMPANY-12623914

PATIENT
  Age: 57 Year
  Sex: Female
  Weight: 36 kg

DRUGS (10)
  1. ERBITUX [Suspect]
     Indication: COLON CANCER
     Route: 042
     Dates: start: 20040413, end: 20040413
  2. BENADRYL [Concomitant]
     Indication: PREMEDICATION
     Route: 048
     Dates: start: 20040412, end: 20040412
  3. DECADRON [Concomitant]
     Indication: PREMEDICATION
     Route: 048
     Dates: start: 20040412, end: 20040412
  4. ZANTAC [Concomitant]
     Indication: PREMEDICATION
     Route: 048
     Dates: start: 20040412, end: 20040412
  5. BENADRYL [Concomitant]
     Route: 042
     Dates: start: 20040413, end: 20040413
  6. DECADRON [Concomitant]
     Route: 042
     Dates: start: 20040413, end: 20040413
  7. ZANTAC [Concomitant]
     Route: 042
     Dates: start: 20040413, end: 20040413
  8. ANZEMET [Concomitant]
     Indication: PREMEDICATION
     Dates: start: 20040413, end: 20040413
  9. NARCOTIC NOS [Concomitant]
  10. LEXAPRO [Concomitant]

REACTIONS (3)
  - DERMATITIS ACNEIFORM [None]
  - HAIR GROWTH ABNORMAL [None]
  - PYREXIA [None]
